FAERS Safety Report 24220876 (Version 2)
Quarter: 2024Q3

REPORT INFORMATION
  Report Type: Spontaneous
  Country: JP (occurrence: JP)
  Receive Date: 20240819
  Receipt Date: 20240819
  Transmission Date: 20241017
  Serious: Yes (Hospitalization)
  Sender: BRISTOL MYERS SQUIBB
  Company Number: JP-BRISTOL-MYERS SQUIBB COMPANY-2024-125413

PATIENT

DRUGS (1)
  1. SPRYCEL [Suspect]
     Active Substance: DASATINIB
     Indication: Product used for unknown indication

REACTIONS (6)
  - Heat illness [Unknown]
  - Migraine [Unknown]
  - Somnolence [Unknown]
  - Decreased appetite [Unknown]
  - Feeling abnormal [Unknown]
  - Inflammation [Unknown]

NARRATIVE: CASE EVENT DATE: 20240802
